FAERS Safety Report 16087528 (Version 2)
Quarter: 2019Q1

REPORT INFORMATION
  Report Type: Spontaneous
  Country: CA (occurrence: CA)
  Receive Date: 20190319
  Receipt Date: 20190321
  Transmission Date: 20190418
  Serious: Yes (Other)
  Sender: FDA-Public Use
  Company Number: CA-009507513-1903CAN007162

PATIENT
  Age: 46 Year
  Sex: Female
  Weight: 37 kg

DRUGS (3)
  1. DIAZEPAM. [Concomitant]
     Active Substance: DIAZEPAM
     Indication: PRODUCT USED FOR UNKNOWN INDICATION
  2. CLONAZEPAM. [Concomitant]
     Active Substance: CLONAZEPAM
     Indication: PRODUCT USED FOR UNKNOWN INDICATION
  3. REMERON [Suspect]
     Active Substance: MIRTAZAPINE
     Indication: INSOMNIA
     Dosage: 15 MILLIGRAM, QD
     Route: 048

REACTIONS (6)
  - Gait inability [Recovering/Resolving]
  - Speech disorder [Recovering/Resolving]
  - Mental impairment [Recovering/Resolving]
  - Somnolence [Recovering/Resolving]
  - Hypokinesia [Recovering/Resolving]
  - Hypersomnia [Recovering/Resolving]
